FAERS Safety Report 5398695-1 (Version None)
Quarter: 2007Q3

REPORT INFORMATION
  Report Type: 
  Country: None (occurrence: None)
  Receive Date: 20070726
  Receipt Date: 20060628
  Transmission Date: 20080115
  Serious: No
  Sender: FDA-Public Use
  Company Number: US-AMGEN-US184676

PATIENT

DRUGS (1)
  1. EPOGEN [Suspect]
     Indication: ANAEMIA
     Route: 065

REACTIONS (1)
  - THERAPEUTIC RESPONSE DECREASED [None]
